FAERS Safety Report 7270760-3 (Version None)
Quarter: 2011Q1

REPORT INFORMATION
  Report Type: 
  Country: None (occurrence: None)
  Receive Date: 20110202
  Receipt Date: 20110120
  Transmission Date: 20110831
  Serious: Yes (Other)
  Sender: FDA-Public Use
  Company Number: US-ELI_LILLY_AND_COMPANY-US201007005499

PATIENT
  Sex: Female

DRUGS (16)
  1. HYZAAR [Concomitant]
  2. AMITRIPTYLINE HCL [Concomitant]
  3. OXYBUTYNIN [Concomitant]
  4. CALCIUM 600 PLUS VITAMIN D [Concomitant]
     Dosage: UNK, 2/D
  5. MULTI-VITAMIN [Concomitant]
  6. CALCIUM + VITAMIN D [Concomitant]
  7. FORTEO [Suspect]
     Dosage: 20 UG, DAILY (1/D)
  8. FORTEO [Suspect]
     Dosage: 20 UG, DAILY (1/D)
  9. LOSARTAN/HYDROCHLOORTHIAZIDE [Concomitant]
  10. METHOTREXATE [Concomitant]
  11. CRANBERRY [Concomitant]
  12. FOLIC ACID [Concomitant]
  13. FORTEO [Suspect]
     Indication: OSTEOPOROSIS
     Dosage: 20 UG, DAILY (1/D)
     Dates: start: 20090310
  14. FORTEO [Suspect]
     Dosage: 20 UG, DAILY (1/D)
  15. FORTEO [Suspect]
     Dosage: 20 UG, DAILY (1/D)
  16. VITAMIN D [Concomitant]

REACTIONS (17)
  - BALANCE DISORDER [None]
  - FACIAL BONES FRACTURE [None]
  - ASTHENIA [None]
  - GAIT DISTURBANCE [None]
  - WEIGHT DECREASED [None]
  - SWELLING [None]
  - CONTUSION [None]
  - PAIN [None]
  - SKIN DISCOLOURATION [None]
  - MALAISE [None]
  - BLOOD CALCIUM INCREASED [None]
  - GOUT [None]
  - CONCUSSION [None]
  - MOBILITY DECREASED [None]
  - SCRATCH [None]
  - SINUS CONGESTION [None]
  - FALL [None]
